FAERS Safety Report 7283109-7 (Version None)
Quarter: 2011Q1

REPORT INFORMATION
  Report Type: 
  Country: None (occurrence: None)
  Receive Date: 20110124
  Receipt Date: 20110107
  Transmission Date: 20110831
  Serious: Yes (Hospitalization)
  Sender: FDA-Public Use
  Company Number: 2011PROUSA00165

PATIENT
  Age: 55 Year
  Sex: Male
  Weight: 124.5 kg

DRUGS (10)
  1. LORAZEPAM [Concomitant]
  2. TEMAZEPAM [Concomitant]
  3. PROVENGE [Suspect]
     Indication: PROSTATE CANCER METASTATIC
     Dosage: 250ML, SINGLE, INTRAVENOUS
     Route: 042
     Dates: start: 20101223, end: 20101223
  4. ALBUTEROL [Concomitant]
  5. CELECOXIB [Concomitant]
  6. OXYCODONE [Concomitant]
  7. PROVENGE [Suspect]
     Indication: PROSTATE CANCER METASTATIC
     Dosage: 250ML, SINGLE, INTRAVENOUS
     Route: 042
     Dates: start: 20101209, end: 20101209
  8. GABAPENTIN [Concomitant]
  9. NILUTAMIDE [Concomitant]
  10. ACETYLSALICYLIC ACID [Concomitant]

REACTIONS (12)
  - LEUKOCYTOSIS [None]
  - DIARRHOEA [None]
  - CHEST PAIN [None]
  - UPPER RESPIRATORY TRACT INFECTION [None]
  - DYSPNOEA [None]
  - INFUSION SITE REACTION [None]
  - PYREXIA [None]
  - CONSTIPATION [None]
  - ASTHENIA [None]
  - PULMONARY EMBOLISM [None]
  - NIGHT SWEATS [None]
  - PLEURITIC PAIN [None]
